FAERS Safety Report 16463025 (Version 3)
Quarter: 2020Q3

REPORT INFORMATION
  Report Type: Report from Study
  Country: JP (occurrence: JP)
  Receive Date: 20190621
  Receipt Date: 20200923
  Transmission Date: 20201102
  Serious: Yes (Death, Life-Threatening, Hospitalization, Other)
  Sender: FDA-Public Use
  Company Number: JP-GLAXOSMITHKLINE-JP2018JPN123974

PATIENT
  Age: 9 Decade
  Sex: Male

DRUGS (25)
  1. URIEF OD [Concomitant]
     Dosage: 16 MG, 1D
  2. METILDIGOXIN [Concomitant]
     Active Substance: METILDIGOXIN
     Dosage: 0.4 MG, 1D
  3. MAGMITT TABLET [Concomitant]
     Dosage: 1125 MG, 1D
  4. MEPOLIZUMAB [Suspect]
     Active Substance: MEPOLIZUMAB
     Indication: ASTHMA
     Dosage: 100 MG, QD
     Route: 058
     Dates: start: 20180427, end: 20180427
  5. METHYCOBAL TABLET [Concomitant]
     Dosage: 4500 ?G, 1D
  6. SINGULAIR TABLETS [Concomitant]
     Indication: ASTHMA
     Dosage: 10 MG, 1D
  7. PREDONINE [Concomitant]
     Active Substance: PREDNISOLONE
     Indication: ASTHMA
     Dosage: 5 MG, 1D
  8. CARBOCISTEINE TABLETS [Concomitant]
     Active Substance: CARBOCYSTEINE
     Dosage: 2250 MG, 1D
  9. LOSARTAN K TABLETS [Concomitant]
     Dosage: 25 MG, 1D
  10. REMERON TABLETS [Concomitant]
     Dosage: 15 MG, 1D
  11. MEPOLIZUMAB [Suspect]
     Active Substance: MEPOLIZUMAB
     Dosage: 100 MG, QD
     Route: 058
     Dates: start: 20180608, end: 20180608
  12. RILMAZAFONE HYDROCHLORIDE HYDRATE [Concomitant]
     Active Substance: RILMAZAFONE HYDROCHLORIDE
     Dosage: 2 MG, 1D
  13. MOSAPRIDE CITRATE TABLETS [Concomitant]
     Active Substance: MOSAPRIDE CITRATE
     Indication: PROPHYLAXIS
     Dosage: 45 MG, 1D
  14. VERAPAMIL HYDROCHLORIDE TABLETS [Concomitant]
     Dosage: 160 MG, 1D
  15. NEXIUM [Concomitant]
     Active Substance: ESOMEPRAZOLE MAGNESIUM
     Indication: PROPHYLAXIS
     Dosage: 20 MG, 1D
  16. CEFEPIME [Concomitant]
     Active Substance: CEFEPIME HYDROCHLORIDE
     Indication: PNEUMONIA
     Dosage: UNK
     Dates: start: 20180820
  17. SOL?MELCORT [Concomitant]
     Active Substance: METHYLPREDNISOLONE SODIUM SUCCINATE
     Indication: ASTHMA
     Dosage: UNK
  18. THEOPHYLLINE SUSTAINED?RELEASE TABLETS [Concomitant]
     Indication: ASTHMA
     Dosage: 800 MG, 1D
  19. EPINASTINE HYDROCHLORIDE. [Concomitant]
     Active Substance: EPINASTINE HYDROCHLORIDE
     Indication: ASTHMA
     Dosage: 20 MG, 1D
  20. AMITIZA CAPSULE [Concomitant]
     Dosage: 96 ?G, 1D
  21. KIPRES [Concomitant]
     Active Substance: MONTELUKAST SODIUM
     Indication: ASTHMA
     Dosage: UNK
     Route: 048
  22. PIPERACILLIN SODIUM + TAZOBACTAM SODIUM [Concomitant]
     Active Substance: PIPERACILLIN SODIUM\TAZOBACTAM SODIUM
     Indication: PYREXIA
     Dosage: UNK
     Dates: start: 20180617, end: 20180622
  23. RELVAR ELLIPTA [Concomitant]
     Active Substance: FLUTICASONE FUROATE\VILANTEROL TRIFENATATE
     Indication: ASTHMA
     Dosage: 200 ?G, 1D
  24. SPIRIVA RESPIMAT [Concomitant]
     Active Substance: TIOTROPIUM BROMIDE
     Indication: ASTHMA
     Dosage: 5 ?G, 1D
  25. MIYA?BM FINE GRANULES [Concomitant]
     Indication: PROPHYLAXIS
     Dosage: UNK

REACTIONS (6)
  - Asthma [Fatal]
  - Asthma [Recovered/Resolved]
  - Pyrexia [Recovered/Resolved]
  - Pneumonia [Fatal]
  - Drug ineffective [Unknown]
  - Inappropriate schedule of product administration [Unknown]

NARRATIVE: CASE EVENT DATE: 20180517
